FAERS Safety Report 8395393-7 (Version None)
Quarter: 2012Q2

REPORT INFORMATION
  Report Type: 
  Country: None (occurrence: None)
  Receive Date: 20120525
  Receipt Date: 20120525
  Transmission Date: 20120825
  Serious: Yes (Other)
  Sender: FDA-Public Use
  Company Number: None

PATIENT
  Sex: Female
  Weight: 101.8 kg

DRUGS (5)
  1. TAXOTERE [Concomitant]
  2. HERCEPTIN [Concomitant]
  3. DOCETAXEL [Suspect]
  4. CYTOXAN [Concomitant]
  5. TAXOTERE [Suspect]
     Dosage: 150 MG EVERY 3 WKS IV INFUSION
     Route: 042
     Dates: start: 20120425

REACTIONS (4)
  - OEDEMA PERIPHERAL [None]
  - PRURITUS [None]
  - SKIN EXFOLIATION [None]
  - RASH PRURITIC [None]
